FAERS Safety Report 16730113 (Version 1)
Quarter: 2019Q3

REPORT INFORMATION
  Report Type: Spontaneous
  Country: US (occurrence: US)
  Receive Date: 20190822
  Receipt Date: 20190822
  Transmission Date: 20191005
  Serious: No
  Sender: FDA-Public Use
  Company Number: US-PACIRA-201800061

PATIENT
  Age: 69 Year
  Sex: Female
  Weight: 117.9 kg

DRUGS (2)
  1. MARCAINE [Concomitant]
     Active Substance: BUPIVACAINE HYDROCHLORIDE
     Indication: POSTOPERATIVE ANALGESIA
     Dosage: 15 ML, SINGLE, FREQUENCY : SINGLE
     Dates: start: 20180619, end: 20180619
  2. EXPAREL [Suspect]
     Active Substance: BUPIVACAINE
     Indication: NERVE BLOCK
     Dosage: 133 MG, SINGLE, FREQUENCY : SINGLE
     Dates: start: 20180619, end: 20180619

REACTIONS (1)
  - Paraesthesia [Recovered/Resolved]

NARRATIVE: CASE EVENT DATE: 20180620
